FAERS Safety Report 7662329-3 (Version None)
Quarter: 2011Q3

REPORT INFORMATION
  Report Type: 
  Country: None (occurrence: None)
  Receive Date: 20110805
  Receipt Date: 20101229
  Transmission Date: 20111222
  Serious: No
  Sender: FDA-Public Use
  Company Number: US-ABBOTT-10P-163-0694204-00

PATIENT
  Sex: Male
  Weight: 111.68 kg

DRUGS (6)
  1. CINNAMON [Concomitant]
     Indication: PRODUCT USED FOR UNKNOWN INDICATION
  2. METOPROLOL TARTRATE [Concomitant]
     Indication: BLOOD PRESSURE
  3. GLIMEPIRIDE [Concomitant]
     Indication: DIABETES MELLITUS
  4. SIMVASTATIN [Concomitant]
     Indication: BLOOD CHOLESTEROL
  5. AMLODIPINE [Concomitant]
     Indication: CARDIAC DISORDER
  6. NIASPAN [Suspect]
     Indication: CARDIOVASCULAR DISORDER
     Dates: start: 20101015

REACTIONS (1)
  - BLOOD GLUCOSE INCREASED [None]
